FAERS Safety Report 9226732 (Version 1)
Quarter: 2013Q2

REPORT INFORMATION
  Report Type: Spontaneous
  Country: US (occurrence: None)
  Receive Date: 20130410
  Receipt Date: 20130410
  Transmission Date: 20140414
  Serious: Yes (Other)
  Sender: FDA-Public Use
  Company Number: NSR_01107_2013

PATIENT
  Age: 43 Year
  Sex: Female

DRUGS (3)
  1. TRAMADOL [Suspect]
     Indication: PRODUCT USED FOR UNKNOWN INDICATION
     Route: 048
  2. VALPROIC ACID [Concomitant]
  3. GABAPENTIN [Concomitant]

REACTIONS (1)
  - Drug screen false positive [None]
